FAERS Safety Report 21302916 (Version 1)
Quarter: 2022Q3

REPORT INFORMATION
  Report Type: Spontaneous
  Country: US (occurrence: US)
  Receive Date: 20220907
  Receipt Date: 20220907
  Transmission Date: 20221027
  Serious: Yes (Hospitalization)
  Sender: FDA-Public Use
  Company Number: US-MYLANLABS-2022M1091577

PATIENT
  Age: 34 Year
  Sex: Female

DRUGS (11)
  1. LITHIUM [Suspect]
     Active Substance: LITHIUM
     Indication: Psychotic disorder
     Dosage: 600 MILLIGRAM, BID
     Route: 065
  2. LITHIUM [Suspect]
     Active Substance: LITHIUM
     Dosage: 300 MILLIGRAM, QD
     Route: 065
  3. LITHIUM [Suspect]
     Active Substance: LITHIUM
     Dosage: 450 MILLIGRAM, BID
     Route: 065
  4. LITHIUM [Suspect]
     Active Substance: LITHIUM
     Dosage: RECEIVED 300 MG DAILY AND 450 MG NIGHTLY
     Route: 065
  5. VALPROIC ACID [Suspect]
     Active Substance: VALPROIC ACID
     Indication: Psychotic disorder
     Dosage: 250 MILLIGRAM, BID EXTENDED RELEASE
     Route: 065
  6. TOPIRAMATE [Suspect]
     Active Substance: TOPIRAMATE
     Indication: Psychotic disorder
     Dosage: 50 MILLIGRAM RECEIVED NIGHTLY
     Route: 065
  7. CLONAZEPAM [Concomitant]
     Active Substance: CLONAZEPAM
     Indication: Psychotic disorder
     Dosage: 1 MILLIGRAM, BID
     Route: 065
  8. QUETIAPINE [Concomitant]
     Active Substance: QUETIAPINE
     Indication: Psychotic disorder
     Dosage: 400 MILLIGRAM, BID
     Route: 065
  9. PANTOPRAZOLE [Concomitant]
     Active Substance: PANTOPRAZOLE
     Indication: Product used for unknown indication
     Dosage: 40 MILLIGRAM, QD
     Route: 065
  10. LEVOTHYROXINE [Concomitant]
     Active Substance: LEVOTHYROXINE
     Indication: Product used for unknown indication
     Dosage: 12.5 MICROGRAM, QD
     Route: 065
  11. MONTELUKAST [Concomitant]
     Active Substance: MONTELUKAST SODIUM
     Indication: Product used for unknown indication
     Dosage: 10 MILLIGRAM, QD
     Route: 065

REACTIONS (2)
  - Toxicity to various agents [Recovering/Resolving]
  - Hyperammonaemia [Recovered/Resolved]
